FAERS Safety Report 18006469 (Version 1)
Quarter: 2020Q3

REPORT INFORMATION
  Report Type: Spontaneous
  Country: US (occurrence: US)
  Receive Date: 20200710
  Receipt Date: 20200710
  Transmission Date: 20201103
  Serious: No
  Sender: FDA-Public Use
  Company Number: US-MYLANLABS-2020M1060079

PATIENT
  Age: 84 Year
  Sex: Male
  Weight: 98.41 kg

DRUGS (1)
  1. FENTANYL TRANSDERMAL SYSTEM [Suspect]
     Active Substance: FENTANYL
     Indication: PAIN
     Dosage: 100 MCG/HR, 72 HOURS
     Route: 062
     Dates: start: 20200601

REACTIONS (5)
  - Application site pain [Not Recovered/Not Resolved]
  - Feeling abnormal [Not Recovered/Not Resolved]
  - Drug ineffective [Not Recovered/Not Resolved]
  - Product adhesion issue [Not Recovered/Not Resolved]
  - Paraesthesia [Not Recovered/Not Resolved]

NARRATIVE: CASE EVENT DATE: 20200617
